FAERS Safety Report 8927836 (Version 1)
Quarter: 2012Q4

REPORT INFORMATION
  Report Type: Report from Study
  Country: JP (occurrence: JP)
  Receive Date: 20121127
  Receipt Date: 20121127
  Transmission Date: 20130627
  Serious: Yes (Hospitalization, Other)
  Sender: FDA-Public Use
  Company Number: JP-VERTEX PHARMACEUTICAL INC.-AE-2012-003622

PATIENT
  Age: 67 Year
  Sex: Female

DRUGS (23)
  1. VX-950 (TELAPREVIR) [Suspect]
     Indication: CHRONIC HEPATITIS C
     Dosage: 2250 mg, qd
     Route: 048
     Dates: start: 20120124, end: 20120130
  2. VX-950 (TELAPREVIR) [Suspect]
     Dosage: 1500 mg, qd
     Route: 048
     Dates: start: 20120131, end: 20120220
  3. VX-950 (TELAPREVIR) [Suspect]
     Dosage: 1000 mg, qd
     Route: 048
     Dates: start: 20120221, end: 20120301
  4. VX-950 (TELAPREVIR) [Suspect]
     Dosage: 1250 mg, qd
     Route: 048
     Dates: start: 20120326, end: 20120404
  5. VX-950 (TELAPREVIR) [Suspect]
     Dosage: 250mg/day and 500mg/day
     Route: 048
     Dates: start: 20120405, end: 20120501
  6. RIBAVIRIN [Suspect]
     Indication: CHRONIC HEPATITIS C
     Dosage: 600 mg, qd
     Route: 048
     Dates: start: 20120124, end: 20120207
  7. RIBAVIRIN [Suspect]
     Dosage: 400 mg, qd
     Route: 048
     Dates: start: 20120208, end: 20120220
  8. RIBAVIRIN [Suspect]
     Dosage: 200 mg, qd
     Route: 048
     Dates: start: 20120221, end: 20120301
  9. RIBAVIRIN [Suspect]
     Dosage: 200 mg, qd
     Route: 048
     Dates: start: 20120326, end: 20120404
  10. RIBAVIRIN [Suspect]
     Dosage: 200 mg/day and 400 mg/day
     Route: 048
     Dates: start: 20120405, end: 20120419
  11. RIBAVIRIN [Suspect]
     Dosage: 400 mg, qd
     Route: 048
     Dates: start: 20120420, end: 20120614
  12. RIBAVIRIN [Suspect]
     Dosage: 600 mg, qd
     Route: 048
     Dates: start: 20120615
  13. PEGINTERFERON ALFA-2B [Suspect]
     Indication: CHRONIC HEPATITIS C
     Dosage: 1.5 ?g/kg, week
     Route: 058
     Dates: start: 20120124, end: 20120224
  14. PEGINTERFERON ALFA-2B [Suspect]
     Dosage: 1.1 ?g/kg, week
     Route: 058
     Dates: start: 20120326, end: 20120621
  15. PEGINTERFERON ALFA-2B [Suspect]
     Dosage: 1.4 ?g/kg, week
     Route: 058
     Dates: start: 20120622
  16. VOLTAREN                           /00372301/ [Concomitant]
     Dosage: 25 mg, prn
     Route: 054
     Dates: start: 20120124
  17. TOUGHMAC E [Concomitant]
     Dosage: 3 DF, qd
     Route: 048
  18. ALLEGRA [Concomitant]
     Dosage: 120 mg, qd
     Route: 048
  19. PARIET [Concomitant]
     Dosage: 10 mg, qd
     Route: 048
     Dates: start: 20120210
  20. NAUZELIN [Concomitant]
     Dosage: 3 DF, qd
     Route: 048
     Dates: start: 20120223, end: 20120327
  21. NAUZELIN [Concomitant]
     Dosage: 3 DF, qd
     Route: 048
  22. DERMOVATE [Concomitant]
     Route: 061
     Dates: start: 20120126
  23. MAGMITT [Concomitant]
     Dosage: 1980 mg, qd
     Route: 048
     Dates: start: 20120125

REACTIONS (3)
  - Decreased appetite [Recovered/Resolved]
  - Anaemia [Not Recovered/Not Resolved]
  - Anaemia [Not Recovered/Not Resolved]
